FAERS Safety Report 16914172 (Version 6)
Quarter: 2019Q4

REPORT INFORMATION
  Report Type: Spontaneous
  Country: IT (occurrence: IT)
  Receive Date: 20191014
  Receipt Date: 20191126
  Transmission Date: 20200122
  Serious: Yes (Other)
  Sender: FDA-Public Use
  Company Number: IT-PFIZER INC-2019431640

PATIENT
  Age: 66 Year
  Sex: Female
  Weight: 65 kg

DRUGS (15)
  1. ACICLOVIR [Concomitant]
     Active Substance: ACYCLOVIR
     Dosage: UNK
     Route: 065
  2. ALLOPURINOLO [Concomitant]
     Active Substance: ALLOPURINOL
     Dosage: UNK
     Route: 065
  3. BACTRIM [Concomitant]
     Active Substance: SULFAMETHOXAZOLE\TRIMETHOPRIM
     Dosage: UNK
     Route: 065
  4. ENDOXAN BAXTER [Suspect]
     Active Substance: CYCLOPHOSPHAMIDE
     Indication: LYMPHOPLASMACYTOID LYMPHOMA/IMMUNOCYTOMA
     Dosage: 750 MG, CYCLIC (3 CYCLE, CHOP,ESCALATED DURING 5 DAYS AND CYCLES REPEATED ABOUT EVERY 28 DAYS (NOT)
     Route: 042
     Dates: start: 2017, end: 201802
  5. SPIRONOLACTON [Concomitant]
     Active Substance: SPIRONOLACTONE
     Dosage: UNK
     Route: 065
  6. PARACETAMOLO [Concomitant]
     Active Substance: ACETAMINOPHEN
     Dosage: UNK
     Route: 065
  7. EUTIROX [Concomitant]
     Active Substance: LEVOTHYROXINE SODIUM
     Dosage: UNK
     Route: 065
  8. VINCRISTINE SULFATE. [Suspect]
     Active Substance: VINCRISTINE SULFATE
     Dosage: 1.4 MG, CYCLIC (D1)
     Route: 042
     Dates: start: 201710, end: 201711
  9. DOXORUBICIN HCL [Suspect]
     Active Substance: DOXORUBICIN HYDROCHLORIDE
     Indication: LYMPHOPLASMACYTOID LYMPHOMA/IMMUNOCYTOMA
     Dosage: 50 MG, CYCLIC (3 CYCLE, CHOP,ESCALATED DURING 5 DAYS AND CYCLES REPEATED ABOUT EVERY 28 DAYS (NOT 2)
     Route: 042
     Dates: start: 2017, end: 201802
  10. DOXORUBICIN HCL [Suspect]
     Active Substance: DOXORUBICIN HYDROCHLORIDE
     Dosage: 50 MG, CYCLIC (D1)
     Route: 042
     Dates: start: 201710, end: 201711
  11. PREDNISONE. [Suspect]
     Active Substance: PREDNISONE
     Indication: LYMPHOPLASMACYTOID LYMPHOMA/IMMUNOCYTOMA
     Dosage: 50 MG, CYCLIC ( 3 CYCLE, CHOP,ESCALATED DURING 5 DAYS AND CYCLES REPEATED ABOUT EVERY 28 DAYS (NOT)
     Route: 048
     Dates: start: 2017, end: 201802
  12. FURSEMIDE [Concomitant]
     Active Substance: FUROSEMIDE
     Dosage: UNK
     Route: 065
  13. VINCRISTINE SULFATE. [Suspect]
     Active Substance: VINCRISTINE SULFATE
     Indication: LYMPHOPLASMACYTOID LYMPHOMA/IMMUNOCYTOMA
     Dosage: 1.4 MG, CYCLIC (THREE CYCLE, CHOP, ESCALATED DURING 5 DAYS AND CYCLES REPEATED ABOUT EVERY 28 DAYS)
     Route: 042
     Dates: start: 2017, end: 201802
  14. PREDNISONE. [Suspect]
     Active Substance: PREDNISONE
     Dosage: 50 MG, CYCLIC (D1)
     Route: 048
     Dates: start: 201710, end: 201711
  15. CYCLOPHOSPHAMIDE. [Concomitant]
     Active Substance: CYCLOPHOSPHAMIDE
     Indication: LYMPHOPLASMACYTOID LYMPHOMA/IMMUNOCYTOMA
     Dosage: 750 MG, CYCLIC (D1)
     Route: 042
     Dates: start: 201710, end: 201711

REACTIONS (4)
  - General physical health deterioration [Recovered/Resolved]
  - Thrombocytopenia [Recovering/Resolving]
  - Lymphocytosis [Unknown]
  - Anaemia [Recovered/Resolved]

NARRATIVE: CASE EVENT DATE: 201710
